FAERS Safety Report 23950759 (Version 1)
Quarter: 2024Q2

REPORT INFORMATION
  Report Type: Spontaneous
  Country: CN (occurrence: CN)
  Receive Date: 20240607
  Receipt Date: 20240607
  Transmission Date: 20240716
  Serious: Yes (Hospitalization, Other)
  Sender: FDA-Public Use
  Company Number: CN-009507513-2406CHN002141

PATIENT
  Age: 89 Year
  Sex: Male
  Weight: 61 kg

DRUGS (3)
  1. JANUVIA [Suspect]
     Active Substance: SITAGLIPTIN PHOSPHATE
     Indication: Type 2 diabetes mellitus
     Dosage: 100 MG, QD, ORALLY
     Route: 048
     Dates: start: 20240524, end: 20240603
  2. METFORMIN HYDROCHLORIDE [Suspect]
     Active Substance: METFORMIN HYDROCHLORIDE
     Indication: Type 2 diabetes mellitus
     Dosage: 0.5 G, BID
     Route: 048
     Dates: start: 20240524
  3. METFORMIN HYDROCHLORIDE [Suspect]
     Active Substance: METFORMIN HYDROCHLORIDE
     Dosage: 0.5 G, TID, ORALLY
     Route: 048
     Dates: start: 20240527, end: 20240603

REACTIONS (5)
  - Diabetes mellitus inadequate control [Unknown]
  - Hospitalisation [Unknown]
  - Diarrhoea [Recovering/Resolving]
  - Abdominal distension [Unknown]
  - Vomiting [Recovering/Resolving]

NARRATIVE: CASE EVENT DATE: 20240501
